FAERS Safety Report 9026539 (Version 1)
Quarter: 2012Q4

REPORT INFORMATION
  Report Type: Spontaneous
  Country: US (occurrence: None)
  Receive Date: 20121218
  Receipt Date: 20121218
  Transmission Date: 20130627
  Serious: Yes (Other)
  Sender: FDA-Public Use
  Company Number: None

PATIENT
  Age: 87 Year
  Sex: Male

DRUGS (1)
  1. KYLEA [Suspect]
     Indication: WET MACULAR DEGENERATION
     Dosage: 2mg every 6-8 weeks  Ophthalmic
     Route: 047
     Dates: start: 20120301, end: 20121024

REACTIONS (1)
  - Uveitis [None]
